FAERS Safety Report 5126991-1 (Version None)
Quarter: 2006Q4

REPORT INFORMATION
  Report Type: 
  Country: None (occurrence: None)
  Receive Date: 20061013
  Receipt Date: 20060612
  Transmission Date: 20070319
  Serious: Yes (Congenital Anomaly)
  Sender: FDA-Public Use
  Company Number: US-GLAXOSMITHKLINE-A0608883A

PATIENT
  Sex: Male
  Weight: 2.6 kg

DRUGS (2)
  1. LAMOTRIGINE [Suspect]
     Indication: MATERNAL CONDITION AFFECTING FOETUS
     Dosage: 200MGD UNKNOWN
  2. NO CONCURRENT MEDICATIONS [Concomitant]

REACTIONS (3)
  - CLEFT LIP [None]
  - CLEFT PALATE [None]
  - DRUG EXPOSURE DURING PREGNANCY [None]
